FAERS Safety Report 8912105 (Version 1)
Quarter: 2012Q4

REPORT INFORMATION
  Report Type: Spontaneous
  Country: US (occurrence: None)
  Receive Date: 20121113
  Receipt Date: 20121113
  Transmission Date: 20130627
  Serious: Yes (Hospitalization)
  Sender: FDA-Public Use
  Company Number: AMAG201203136

PATIENT
  Age: 82 Year
  Sex: Male
  Weight: 62.1 kg

DRUGS (2)
  1. FERAHEME [Suspect]
     Indication: HEMOGLOBIN LOW
     Dosage: SINGLE
     Route: 042
     Dates: start: 20121022, end: 20121022
  2. ADVIL (IBUPROFEN) [Concomitant]

REACTIONS (10)
  - Pneumonia [None]
  - Dehydration [None]
  - Influenza like illness [None]
  - Fatigue [None]
  - Pyrexia [None]
  - Headache [None]
  - Dyspnoea exertional [None]
  - Decreased appetite [None]
  - Back pain [None]
  - Hypersomnia [None]
